FAERS Safety Report 7617506-4 (Version None)
Quarter: 2011Q3

REPORT INFORMATION
  Report Type: 
  Country: None (occurrence: None)
  Receive Date: 20110718
  Receipt Date: 20110705
  Transmission Date: 20111222
  Serious: Yes (Other)
  Sender: FDA-Public Use
  Company Number: GB-ELI_LILLY_AND_COMPANY-GB201106000494

PATIENT
  Sex: Male
  Weight: 94 kg

DRUGS (13)
  1. DULOXETINE HYDROCHLORIDE [Suspect]
     Indication: DIABETIC NEUROPATHY
     Dosage: 60 MG, BID
     Dates: start: 20110222, end: 20110531
  2. FLUTICASONE PROPIONATE [Concomitant]
     Indication: ASTHMA
     Dosage: 50 UG, EACH MORNING
     Dates: start: 19930922
  3. OMEPRAZOLE [Concomitant]
     Indication: CHEST PAIN
     Dosage: 20 MG, QD
     Dates: start: 20080627
  4. CLENIL [Concomitant]
     Dosage: 100 UG, BID
     Dates: start: 20080429
  5. METFORMIN HCL [Concomitant]
     Indication: TYPE 2 DIABETES MELLITUS
     Dosage: 500 MG, BID
     Dates: start: 20100614
  6. ASPIRIN [Concomitant]
     Dosage: 75 MG, UNK
     Dates: start: 20080627
  7. DULOXETINE HYDROCHLORIDE [Suspect]
     Dosage: 120 MG, QD
     Route: 048
     Dates: end: 20110414
  8. ALBUTEROL [Concomitant]
     Indication: ASTHMA
     Dosage: 100 UG, PRN
     Dates: start: 20030424
  9. TEMAZEPAM [Concomitant]
     Indication: ANXIETY
     Dosage: 10 MG, EACH EVENING
     Dates: start: 20050418
  10. ACETAMINOPHEN [Concomitant]
     Indication: ROTATOR CUFF SYNDROME
     Dosage: 500 MG, PRN
     Dates: start: 19960926
  11. RAMIPRIL [Concomitant]
     Dosage: 10 MG, QD
     Dates: start: 20080627
  12. SIMVASTATIN [Concomitant]
     Indication: HYPERCHOLESTEROLAEMIA
     Dosage: 20 MG, EACH EVENING
     Dates: start: 20060127
  13. AMLODIPINE [Concomitant]
     Indication: TYPE 2 DIABETES MELLITUS
     Dosage: 5 MG, QD
     Dates: start: 20051230

REACTIONS (2)
  - URINARY TRACT OBSTRUCTION [None]
  - URINARY RETENTION [None]
